FAERS Safety Report 5751532-5 (Version None)
Quarter: 2008Q2

REPORT INFORMATION
  Report Type: 
  Country: None (occurrence: None)
  Receive Date: 20080527
  Receipt Date: 20080512
  Transmission Date: 20081010
  Serious: Yes (Hospitalization)
  Sender: FDA-Public Use
  Company Number: WAES 0805USA00808

PATIENT
  Age: 52 Year
  Sex: Male
  Weight: 76.6579 kg

DRUGS (11)
  1. ZETIA [Suspect]
     Dosage: PO
     Route: 048
  2. ZOCOR [Suspect]
     Dosage: PO
     Route: 048
  3. COREG [Suspect]
  4. PREVACID [Suspect]
  5. SYNTHROID [Suspect]
  6. PERCOCET [Suspect]
  7. HYDROXYZINE HYDROCHLORIDE UNK [Suspect]
  8. ZOFRAN [Suspect]
  9. KEPPRA [Suspect]
  10. TEMOZOLOMIDE 145 MG [Suspect]
     Indication: GLIOBLASTOMA
     Dosage: 145 MG/DAILY
     Dates: start: 20080317, end: 20080428
  11. CLOTRIMAZOLE [Concomitant]

REACTIONS (8)
  - ABDOMINAL PAIN [None]
  - DRUG HYPERSENSITIVITY [None]
  - EMBOLISM [None]
  - PAIN [None]
  - RASH ERYTHEMATOUS [None]
  - RASH PRURITIC [None]
  - RENAL INFARCT [None]
  - SPLENIC INFARCTION [None]
